FAERS Safety Report 8034290-3 (Version None)
Quarter: 2012Q1

REPORT INFORMATION
  Report Type: 
  Country: None (occurrence: None)
  Receive Date: 20120110
  Receipt Date: 20120106
  Transmission Date: 20120608
  Serious: Yes (Hospitalization)
  Sender: FDA-Public Use
  Company Number: PHHO2011IT15105

PATIENT
  Sex: Male
  Weight: 70 kg

DRUGS (2)
  1. FTY [Suspect]
     Indication: MULTIPLE SCLEROSIS
     Dosage: 0.5 MG, QD
     Dates: start: 20110218, end: 20110903
  2. PRELECTAL [Concomitant]
     Indication: HYPERTENSION
     Dosage: UNK
     Dates: start: 20080229

REACTIONS (3)
  - DRUG INEFFECTIVE [None]
  - CENTRAL NERVOUS SYSTEM LESION [None]
  - HEMIANOPIA [None]
